FAERS Safety Report 10349258 (Version 3)
Quarter: 2015Q2

REPORT INFORMATION
  Report Type: Report from Study
  Country: US (occurrence: US)
  Receive Date: 20140730
  Receipt Date: 20150613
  Transmission Date: 20150821
  Serious: Yes (Hospitalization)
  Sender: FDA-Public Use
  Company Number: US-BIOGENIDEC-2014BI074003

PATIENT
  Age: 54 Year
  Sex: Female

DRUGS (1)
  1. TYSABRI [Suspect]
     Active Substance: NATALIZUMAB
     Indication: MULTIPLE SCLEROSIS
     Route: 042
     Dates: start: 20110630

REACTIONS (12)
  - Blood sodium decreased [Recovered/Resolved]
  - Inappropriate antidiuretic hormone secretion [Recovered/Resolved]
  - Pyrexia [Recovered/Resolved]
  - Stress [Recovered/Resolved]
  - Multiple sclerosis [Not Recovered/Not Resolved]
  - Peroneal nerve palsy [Recovered/Resolved]
  - Gastrointestinal infection [Recovered/Resolved]
  - Urinary tract infection [Not Recovered/Not Resolved]
  - Central venous catheterisation [Recovered/Resolved]
  - Keratosis pilaris [Recovered/Resolved]
  - Enterocolitis bacterial [Recovered/Resolved]
  - Uhthoff^s phenomenon [Not Recovered/Not Resolved]

NARRATIVE: CASE EVENT DATE: 2012
